APPROVED DRUG PRODUCT: PHENYTOIN SODIUM
Active Ingredient: PHENYTOIN SODIUM
Strength: 50MG/ML
Dosage Form/Route: INJECTABLE;INJECTION
Application: A089744 | Product #001
Applicant: HOSPIRA INC
Approved: Dec 18, 1987 | RLD: No | RS: No | Type: DISCN